FAERS Safety Report 19810351 (Version 1)
Quarter: 2021Q3

REPORT INFORMATION
  Report Type: Spontaneous
  Country: CN (occurrence: CN)
  Receive Date: 20210909
  Receipt Date: 20210909
  Transmission Date: 20211014
  Serious: Yes (Death, Other)
  Sender: FDA-Public Use
  Company Number: CN-PFIZER INC-202101120041

PATIENT
  Age: 75 Year
  Sex: Male

DRUGS (4)
  1. DIGOXIN. [Concomitant]
     Active Substance: DIGOXIN
     Indication: CARDIAC FAILURE CHRONIC
     Dosage: 0.125 MG, DAILY
  2. COMPOUND GLYCYRRHIZIN TABLETS [Interacting]
     Active Substance: GLYCYRRHIZIN
     Indication: UPPER RESPIRATORY TRACT INFECTION
     Dosage: 4 DF, 3X/DAY
  3. AZITHROMYCIN ANHYDROUS. [Suspect]
     Active Substance: AZITHROMYCIN ANHYDROUS
     Indication: UPPER RESPIRATORY TRACT INFECTION
     Dosage: 0.5 G, 1X/DAY
  4. SIMVASTATIN. [Interacting]
     Active Substance: SIMVASTATIN
     Indication: CARDIAC FAILURE CHRONIC
     Dosage: 40 MG, DAILY

REACTIONS (3)
  - Arrhythmia [Fatal]
  - Drug interaction [Fatal]
  - Hepatic necrosis [Fatal]
